FAERS Safety Report 14574039 (Version 5)
Quarter: 2018Q3

REPORT INFORMATION
  Report Type: Report from Study
  Country: US (occurrence: US)
  Receive Date: 20180226
  Receipt Date: 20180829
  Transmission Date: 20181010
  Serious: Yes (Death, Hospitalization)
  Sender: FDA-Public Use
  Company Number: US-CELGENEUS-USA-20180207600

PATIENT
  Age: 66 Year
  Sex: Male

DRUGS (26)
  1. MEDI4736 (DURVALUMAB) [Suspect]
     Active Substance: DURVALUMAB
     Indication: NON-SMALL CELL LUNG CANCER
     Dosage: 1500 MILLIGRAM
     Route: 041
     Dates: start: 20180202, end: 20180202
  2. GEMFIBROZIL. [Concomitant]
     Active Substance: GEMFIBROZIL
     Indication: BLOOD TRIGLYCERIDES INCREASED
     Dosage: 1200 MILLIGRAM
     Route: 048
     Dates: start: 2009
  3. POTASSIUM CHLORIDE. [Concomitant]
     Active Substance: POTASSIUM CHLORIDE
     Indication: OEDEMA
  4. INSULIN GLARGINE [Concomitant]
     Active Substance: INSULIN GLARGINE
     Indication: DIABETES MELLITUS
     Dosage: 80 MILLIGRAM
     Route: 058
     Dates: start: 201707
  5. FILGRASTIM [Concomitant]
     Active Substance: FILGRASTIM
     Indication: NEUTROPENIA
     Dosage: 30 MICROGRAM
     Route: 055
     Dates: start: 20180216
  6. ATROPINE. [Concomitant]
     Active Substance: ATROPINE
     Indication: DIARRHOEA
     Dosage: 2.5 MILLIGRAM
     Route: 048
     Dates: start: 20180216
  7. CARBOPLATIN. [Suspect]
     Active Substance: CARBOPLATIN
     Indication: NON-SMALL CELL LUNG CANCER
     Dosage: 597 AUC
     Route: 041
     Dates: start: 20180202, end: 20180202
  8. GABAPENTIN. [Concomitant]
     Active Substance: GABAPENTIN
     Indication: NEUROPATHY PERIPHERAL
     Dosage: 1200 MILLIGRAM
     Route: 048
     Dates: start: 201707
  9. FUROSEMIDE. [Concomitant]
     Active Substance: FUROSEMIDE
     Indication: OEDEMA
     Dosage: 60 MILLIGRAM
     Route: 048
     Dates: start: 20140129
  10. INSULIN ASPART [Concomitant]
     Active Substance: INSULIN ASPART
     Indication: DIABETES MELLITUS
     Dosage: 80 MILLIGRAM
     Route: 058
     Dates: start: 20171114
  11. SALBUTAMOL SULFATE [Concomitant]
     Active Substance: ALBUTEROL SULFATE
     Indication: DYSPNOEA
     Dosage: 102 GRAM
     Route: 055
     Dates: start: 20180124
  12. OXYGEN. [Concomitant]
     Active Substance: OXYGEN
     Indication: DYSPNOEA
     Dosage: 2 L BNC
     Route: 055
     Dates: start: 20180124
  13. IPRATROPIUM BROMIDE WITH SALBUTAMOL [Concomitant]
     Indication: DYSPNOEA
     Dosage: 3 MILLILITER
     Route: 055
     Dates: start: 20180124
  14. ABRAXANE [Suspect]
     Active Substance: PACLITAXEL
     Indication: NON-SMALL CELL LUNG CANCER
     Dosage: 100 MILLIGRAM/SQ. METER
     Route: 041
     Dates: start: 20180202, end: 20180202
  15. POTASSIUM CHLORIDE. [Concomitant]
     Active Substance: POTASSIUM CHLORIDE
     Indication: NUTRITIONAL SUPPLEMENTATION
     Dosage: 10 MILLIEQUIVALENTS
     Route: 048
     Dates: start: 20140129
  16. ENOXAPARIN SODIUM. [Concomitant]
     Active Substance: ENOXAPARIN SODIUM
     Indication: DEEP VEIN THROMBOSIS
     Dosage: 300 MILLIGRAM
     Route: 058
     Dates: start: 20180124
  17. LOPERAMIDE HYDROCHLORIDE. [Concomitant]
     Active Substance: LOPERAMIDE HYDROCHLORIDE
     Indication: DIARRHOEA
     Dosage: 2 MILLIGRAM
     Route: 048
     Dates: start: 20180216
  18. QUINAPRIL HYDROCHLORIDE. [Concomitant]
     Active Substance: QUINAPRIL HYDROCHLORIDE
     Indication: HYPERTENSION
     Dosage: 40 MILLIEQUIVALENTS
     Route: 048
     Dates: start: 20140129
  19. PIOGLITAZONE HYDROCHLORIDE. [Concomitant]
     Active Substance: PIOGLITAZONE HYDROCHLORIDE
     Indication: DIABETES MELLITUS
     Dosage: 30 MILLIEQUIVALENTS
     Route: 048
     Dates: start: 20140129
  20. HYDROCODONE/ GUAIFENESIN/ PSEUDOEPHEDRINE/ ETHANOL [Concomitant]
     Indication: BACK PAIN
     Dosage: 60 MILLIGRAM
     Route: 048
     Dates: start: 20171215
  21. NYSTATIN. [Concomitant]
     Active Substance: NYSTATIN
     Indication: MUCOSAL INFLAMMATION
     Dosage: 15 MILLILITER
     Route: 048
     Dates: start: 20180216
  22. DIPHENOXYLATE [Concomitant]
     Active Substance: DIPHENOXYLATE
     Indication: DIARRHOEA
     Dosage: .025 MILLIGRAM
     Route: 048
     Dates: start: 20180216
  23. HYDROCORTISONE. [Concomitant]
     Active Substance: HYDROCORTISONE
     Indication: RASH
     Dosage: .025 MILLIGRAM
     Route: 061
     Dates: start: 20180216
  24. OMEPRAZOLE. [Concomitant]
     Active Substance: OMEPRAZOLE
     Indication: GASTROOESOPHAGEAL REFLUX DISEASE
     Dosage: 40 MILLIGRAM
     Route: 048
     Dates: start: 2009
  25. PRAVASTATIN SODIUM. [Concomitant]
     Active Substance: PRAVASTATIN SODIUM
     Indication: HYPERCHOLESTEROLAEMIA
     Dosage: 40 MILLIGRAM
     Route: 048
     Dates: start: 20140129
  26. HYDROCODONE W/ACETAMINOPHEN [Concomitant]
     Active Substance: ACETAMINOPHEN\HYDROCODONE BITARTRATE
     Indication: BACK PAIN
     Dosage: 1950 MILLIGRAM
     Route: 048
     Dates: start: 20171215

REACTIONS (4)
  - Pleural effusion [Fatal]
  - Pulseless electrical activity [Fatal]
  - Non-small cell lung cancer [Fatal]
  - Pleural effusion [Recovered/Resolved]

NARRATIVE: CASE EVENT DATE: 20180209
